FAERS Safety Report 7771416-0 (Version None)
Quarter: 2011Q3

REPORT INFORMATION
  Report Type: 
  Country: None (occurrence: None)
  Receive Date: 20110922
  Receipt Date: 20110418
  Transmission Date: 20111222
  Serious: No
  Sender: FDA-Public Use
  Company Number: US-ASTRAZENECA-2009UW11586

PATIENT
  Age: 465 Month
  Sex: Male
  Weight: 84.8 kg

DRUGS (5)
  1. FLUPHENAZINE [Concomitant]
     Dates: start: 20070701
  2. RISPERDAL [Concomitant]
     Dates: start: 20070701
  3. BENZTROPINE MESYLATE [Concomitant]
     Route: 048
     Dates: start: 20070205
  4. SEROQUEL [Suspect]
     Indication: SCHIZOPHRENIA
     Dosage: 50 TO 100 MG
     Route: 048
     Dates: start: 20051001, end: 20080101
  5. SEROQUEL [Suspect]
     Dosage: 50-200MG AT BEDTIME AS NEEDED
     Route: 048
     Dates: start: 20061012

REACTIONS (2)
  - TYPE 2 DIABETES MELLITUS [None]
  - OBESITY [None]
